FAERS Safety Report 17556354 (Version 1)
Quarter: 2020Q1

REPORT INFORMATION
  Report Type: Spontaneous
  Country: US (occurrence: US)
  Receive Date: 20200310
  Receipt Date: 20200310
  Transmission Date: 20200409
  Serious: Yes (Hospitalization)
  Sender: FDA-Public Use
  Company Number: None

PATIENT
  Age: 5 Year
  Sex: Male
  Weight: 25.2 kg

DRUGS (23)
  1. MILRINONE [Concomitant]
     Active Substance: MILRINONE
  2. WALNUT OIL [Concomitant]
     Active Substance: WALNUT OIL
  3. GLYCERIN. [Concomitant]
     Active Substance: GLYCERIN
  4. ALTEPLASE. [Concomitant]
     Active Substance: ALTEPLASE
  5. DOCUSATE [Concomitant]
     Active Substance: DOCUSATE
  6. HYDROCHLOROTHIAZIDE. [Concomitant]
     Active Substance: HYDROCHLOROTHIAZIDE
  7. BUMETANIDE. [Concomitant]
     Active Substance: BUMETANIDE
  8. CHOLECALCIFEROL [Concomitant]
     Active Substance: CHOLECALCIFEROL
  9. HEPARIN FLUSH [Concomitant]
     Active Substance: HEPARIN SODIUM
  10. SENNA [Concomitant]
     Active Substance: SENNA LEAF\SENNOSIDES\SENNOSIDES A AND B
  11. TRIHEPTANOIN ORAL LIQUID [Suspect]
     Active Substance: TRIHEPTANOIN
     Indication: LONG-CHAIN ACYL-COENZYME A DEHYDROGENASE DEFICIENCY
     Dosage: OTHER ROUTE: PER GJ UTBE
     Dates: start: 20191010
  12. SODIUM CHLORIDE FLUSH [Concomitant]
     Active Substance: SODIUM CHLORIDE
  13. SPIRONOLACTONE. [Concomitant]
     Active Substance: SPIRONOLACTONE
  14. CARVEDILOL. [Concomitant]
     Active Substance: CARVEDILOL
  15. MEXILETINE [Concomitant]
     Active Substance: MEXILETINE
  16. AQUAPHOR TOPICAL OINTMENT [Concomitant]
  17. LACTULOSE. [Concomitant]
     Active Substance: LACTULOSE
  18. MULTIVITAMIN WITH IRON [Concomitant]
     Active Substance: IRON\VITAMINS
  19. AQUAPHOR HEALING TOPICAL OINTMENT [Concomitant]
  20. POTASSIUM CHLORIDE. [Concomitant]
     Active Substance: POTASSIUM CHLORIDE
  21. DESONIDE TOPICAL [Concomitant]
  22. MELATONIN [Concomitant]
     Active Substance: MELATONIN
  23. POLYETHYLENE GLYCOL 3350 ORAL POWDER [Concomitant]

REACTIONS (2)
  - Transaminases increased [None]
  - Renal injury [None]

NARRATIVE: CASE EVENT DATE: 20200303
